FAERS Safety Report 8734452 (Version 3)
Quarter: 2013Q2

REPORT INFORMATION
  Report Type: Spontaneous
  Country: US (occurrence: US)
  Receive Date: 20120821
  Receipt Date: 20130401
  Transmission Date: 20140414
  Serious: Yes (Other)
  Sender: FDA-Public Use
  Company Number: US-GLAXOSMITHKLINE-A0989535A

PATIENT
  Sex: Female

DRUGS (2)
  1. ADVAIR [Suspect]
     Indication: PRODUCT USED FOR UNKNOWN INDICATION
     Dosage: 1PUFF THREE TIMES PER DAY
     Route: 055
  2. PRENATAL VITAMINS [Concomitant]

REACTIONS (3)
  - Abortion spontaneous [Unknown]
  - Overdose [Unknown]
  - Exposure during pregnancy [Unknown]
